FAERS Safety Report 10156737 (Version 1)
Quarter: 2014Q2

REPORT INFORMATION
  Report Type: Spontaneous
  Country: IN (occurrence: IN)
  Receive Date: 20140507
  Receipt Date: 20140507
  Transmission Date: 20141212
  Serious: Yes (Hospitalization, Other)
  Sender: FDA-Public Use
  Company Number: IN-ASTRAZENECA-2014SE29600

PATIENT
  Sex: Male

DRUGS (6)
  1. BRILINTA [Suspect]
     Indication: PERCUTANEOUS CORONARY INTERVENTION
     Route: 048
  2. ASPIRIN [Suspect]
     Indication: PERCUTANEOUS CORONARY INTERVENTION
     Route: 048
  3. ATORVASTATIN [Concomitant]
     Indication: PERCUTANEOUS CORONARY INTERVENTION
     Dosage: 80MG TOTAL DAILY DOSE
     Route: 048
  4. NICORANDIL [Concomitant]
     Indication: PERCUTANEOUS CORONARY INTERVENTION
     Route: 048
  5. TRIMETAZIDINE [Concomitant]
     Indication: PERCUTANEOUS CORONARY INTERVENTION
  6. PANTOPRAZOLE [Concomitant]
     Route: 048

REACTIONS (2)
  - Urinary retention [Unknown]
  - Haematuria [Recovered/Resolved]
